FAERS Safety Report 13831438 (Version 1)
Quarter: 2017Q3

REPORT INFORMATION
  Report Type: Spontaneous
  Country: US (occurrence: US)
  Receive Date: 20170803
  Receipt Date: 20170803
  Transmission Date: 20171127
  Serious: Yes (Other)
  Sender: FDA-Public Use
  Company Number: US-JNJFOC-20170800909

PATIENT

DRUGS (1)
  1. HUMAN THROMBIN [Suspect]
     Active Substance: THROMBIN HUMAN
     Indication: VASCULAR PSEUDOANEURYSM
     Route: 050

REACTIONS (6)
  - Infection [Unknown]
  - Peripheral artery thrombosis [Unknown]
  - Deep vein thrombosis [Unknown]
  - Haematoma infection [Unknown]
  - Drug ineffective for unapproved indication [Recovered/Resolved]
  - Off label use [Unknown]
